FAERS Safety Report 4965503-X (Version None)
Quarter: 2006Q2

REPORT INFORMATION
  Report Type: 
  Country: None (occurrence: None)
  Receive Date: 20060406
  Receipt Date: 20051004
  Transmission Date: 20061013
  Serious: Yes (Hospitalization)
  Sender: FDA-Public Use
  Company Number: US-MERCK-0510USA03479

PATIENT
  Age: 70 Year
  Sex: Female
  Weight: 54 kg

DRUGS (1)
  1. VIOXX [Suspect]
     Indication: ARTHRITIS
     Route: 048
     Dates: start: 20020601, end: 20040301

REACTIONS (6)
  - ARRHYTHMIA [None]
  - BUNION [None]
  - CARDIOVASCULAR DISORDER [None]
  - DIZZINESS [None]
  - TACHYCARDIA [None]
  - THROMBOSIS [None]
